FAERS Safety Report 11335188 (Version 1)
Quarter: 2015Q3

REPORT INFORMATION
  Report Type: Spontaneous
  Country: US (occurrence: None)
  Receive Date: 20150731
  Receipt Date: 20150731
  Transmission Date: 20151125
  Serious: Yes (Other)
  Sender: FDA-Public Use
  Company Number: None

PATIENT
  Age: 35 Year
  Sex: Female
  Weight: 62.14 kg

DRUGS (5)
  1. TOPIRIMATE [Concomitant]
  2. RIZATRIPAN [Concomitant]
  3. TOPIRAMATE 100 MG ZYDUS [Suspect]
     Active Substance: TOPIRAMATE
     Indication: PROPHYLAXIS
     Dosage: 1 PILLS
     Route: 048
     Dates: start: 20150324, end: 20150527
  4. IBUPROFEN/TYLENOL [Concomitant]
  5. TOPIRAMATE 100 MG ZYDUS [Suspect]
     Active Substance: TOPIRAMATE
     Indication: MIGRAINE
     Dosage: 1 PILLS
     Route: 048
     Dates: start: 20150324, end: 20150527

REACTIONS (6)
  - Paraesthesia [None]
  - Headache [None]
  - Dysgeusia [None]
  - Product quality issue [None]
  - Product formulation issue [None]
  - Product substitution issue [None]

NARRATIVE: CASE EVENT DATE: 20150501
